FAERS Safety Report 16792724 (Version 4)
Quarter: 2019Q4

REPORT INFORMATION
  Report Type: Report from Study
  Country: GT (occurrence: GT)
  Receive Date: 20190910
  Receipt Date: 20191129
  Transmission Date: 20200122
  Serious: Yes (Other)
  Sender: FDA-Public Use
  Company Number: PHHY2019GT151035

PATIENT
  Sex: Female
  Weight: 61.23 kg

DRUGS (7)
  1. ACCENTRIX [Suspect]
     Active Substance: RANIBIZUMAB
     Dosage: UNK
     Route: 065
     Dates: start: 20190919
  2. GALVUS MET [Suspect]
     Active Substance: METFORMIN HYDROCHLORIDE\VILDAGLIPTIN
     Indication: DIABETES MELLITUS
     Dosage: 50 MG, QD
     Route: 048
  3. INSULIN [Concomitant]
     Active Substance: INSULIN NOS
     Indication: PRODUCT USED FOR UNKNOWN INDICATION
     Dosage: 30 U, QD (4 YEARS AGO)
     Route: 065
  4. OFTAFILM [Concomitant]
     Indication: PRODUCT USED FOR UNKNOWN INDICATION
     Dosage: 1 GTT (IN EACH EYE), QD (1 YEAR AGO)
     Route: 065
  5. ACCENTRIX [Suspect]
     Active Substance: RANIBIZUMAB
     Indication: MACULAR OEDEMA
     Route: 065
  6. GOTINAL [Concomitant]
     Indication: PRODUCT USED FOR UNKNOWN INDICATION
     Dosage: 1 GTT (IN EACH EYE), QD (1 YEAR AGO)
     Route: 065
  7. LANTUS [Concomitant]
     Active Substance: INSULIN GLARGINE
     Indication: DIABETES MELLITUS
     Dosage: 25 U, QN
     Route: 065

REACTIONS (18)
  - Glaucoma [Unknown]
  - Cataract [Unknown]
  - Malaise [Unknown]
  - Headache [Unknown]
  - Eye disorder [Unknown]
  - Retinal vascular disorder [Unknown]
  - Blood triglycerides increased [Unknown]
  - Urinary tract infection [Unknown]
  - Eye infection [Unknown]
  - Eye oedema [Unknown]
  - Eye haemorrhage [Unknown]
  - Concomitant disease aggravated [Unknown]
  - Hypoacusis [Unknown]
  - General physical health deterioration [Unknown]
  - Nervousness [Unknown]
  - Vomiting [Recovered/Resolved]
  - Dizziness [Recovered/Resolved]
  - Nausea [Recovered/Resolved]
